APPROVED DRUG PRODUCT: ASACOL HD
Active Ingredient: MESALAMINE
Strength: 800MG **Federal Register determination that product was not discontinued or withdrawn for safety or effectiveness reasons**
Dosage Form/Route: TABLET, DELAYED RELEASE;ORAL
Application: N021830 | Product #001
Applicant: ABBVIE INC
Approved: May 29, 2008 | RLD: Yes | RS: No | Type: DISCN